FAERS Safety Report 15731373 (Version 1)
Quarter: 2018Q4

REPORT INFORMATION
  Report Type: Spontaneous
  Country: IT (occurrence: IT)
  Receive Date: 20181217
  Receipt Date: 20181217
  Transmission Date: 20190205
  Serious: Yes (Life-Threatening)
  Sender: FDA-Public Use
  Company Number: IT-SAKK-2018SA341826AA

PATIENT
  Age: 91 Year
  Sex: Female
  Weight: 55 kg

DRUGS (6)
  1. REPAGLINIDE. [Suspect]
     Active Substance: REPAGLINIDE
     Indication: DIABETES MELLITUS
     Dosage: 5 MG, QD
     Route: 048
  2. LANSOPRAZOLE. [Concomitant]
     Active Substance: LANSOPRAZOLE
     Dosage: 30 MG, QD
     Route: 048
  3. SERTRALINE [Concomitant]
     Active Substance: SERTRALINE HYDROCHLORIDE
     Dosage: 50 MG, QD
     Route: 048
  4. INSULIN GLARGINE [Suspect]
     Active Substance: INSULIN GLARGINE
     Indication: DIABETES MELLITUS
     Dosage: 15 IU, QD
     Route: 058
  5. KANRENOL [Concomitant]
     Active Substance: CANRENOATE POTASSIUM
     Dosage: 100 MG
     Route: 048
  6. CLEXANE [Concomitant]
     Active Substance: ENOXAPARIN SODIUM
     Dosage: 1 DF, QD
     Route: 058

REACTIONS (2)
  - Dehydration [Recovered/Resolved]
  - Hyperglycaemia [Recovered/Resolved]

NARRATIVE: CASE EVENT DATE: 20180816
